FAERS Safety Report 6960063-6 (Version None)
Quarter: 2010Q3

REPORT INFORMATION
  Report Type: 
  Country: None (occurrence: None)
  Receive Date: 20100901
  Receipt Date: 20100810
  Transmission Date: 20110219
  Serious: Yes (Hospitalization)
  Sender: FDA-Public Use
  Company Number: BR-BAYER-201014919LA

PATIENT
  Age: 53 Year
  Sex: Female

DRUGS (6)
  1. BETAFERON [Suspect]
     Indication: MULTIPLE SCLEROSIS
     Dosage: TOTAL DAILY DOSE: 9.6 MIU
     Route: 058
     Dates: start: 19980101, end: 20100401
  2. ATACAND [Concomitant]
     Indication: HYPERTENSION
     Dosage: AS USED: 1/2 DF
     Route: 048
  3. ATACAND [Concomitant]
     Dosage: TOTAL DAILY DOSE: 1 DF
     Route: 048
  4. UNKNOWN DRUG [Concomitant]
     Indication: BLOOD CHOLESTEROL INCREASED
     Dosage: TOTAL DAILY DOSE: 1 DF
     Route: 048
  5. FLUOXETINE [Concomitant]
     Indication: DEPRESSION
     Dosage: TOTAL DAILY DOSE: 1 DF
     Route: 048
  6. RIVOTRIL [Concomitant]
     Indication: SLEEP DISORDER THERAPY
     Dosage: TOTAL DAILY DOSE: 1 DF
     Route: 048

REACTIONS (9)
  - INJECTION SITE CELLULITIS [None]
  - INJECTION SITE ERYTHEMA [None]
  - INJECTION SITE INDURATION [None]
  - INJECTION SITE SWELLING [None]
  - INJECTION SITE WARMTH [None]
  - PYREXIA [None]
  - URINARY RETENTION [None]
  - URINARY TRACT INFECTION [None]
  - UROSEPSIS [None]
